FAERS Safety Report 18648171 (Version 2)
Quarter: 2021Q1

REPORT INFORMATION
  Report Type: Report from Study
  Country: US (occurrence: US)
  Receive Date: 20201222
  Receipt Date: 20210113
  Transmission Date: 20210419
  Serious: Yes (Hospitalization)
  Sender: FDA-Public Use
  Company Number: US-ROCHE-2549668

PATIENT
  Age: 68 Year
  Sex: Female
  Weight: 78.28 kg

DRUGS (2)
  1. ATEZOLIZUMAB. [Suspect]
     Active Substance: ATEZOLIZUMAB
     Indication: RENAL CELL CARCINOMA
     Dosage: DATE OF LAST DOSE OF ATEZOLIZUMAB PRIOR TO EVENT ONSET: 23/JAN/2020
     Route: 042
     Dates: start: 20200123
  2. BEVACIZUMAB. [Suspect]
     Active Substance: BEVACIZUMAB
     Indication: RENAL CELL CARCINOMA
     Dosage: DATE OF LAST DOSE OF BEVACIZUMAB PRIOR TO EVENT ONSET: 23/JAN/2020
     Route: 042
     Dates: start: 20200123

REACTIONS (2)
  - Pneumonitis [Recovered/Resolved]
  - Rash maculo-papular [Recovered/Resolved]

NARRATIVE: CASE EVENT DATE: 20200201
